FAERS Safety Report 10044607 (Version 2)
Quarter: 2014Q1

REPORT INFORMATION
  Report Type: Spontaneous
  Country: US (occurrence: US)
  Receive Date: 20140328
  Receipt Date: 20140328
  Transmission Date: 20141002
  Serious: Yes (Life-Threatening, Hospitalization)
  Sender: FDA-Public Use
  Company Number: US-US-EMD SERONO, INC.-230018K08USA

PATIENT
  Age: 39 Year
  Sex: Male
  Weight: 70 kg

DRUGS (2)
  1. REBIF [Suspect]
     Indication: MULTIPLE SCLEROSIS
     Route: 058
     Dates: start: 20030321
  2. AMANTADINE [Concomitant]
     Indication: PRODUCT USED FOR UNKNOWN INDICATION
     Route: 065

REACTIONS (3)
  - Myocardial infarction [Recovering/Resolving]
  - Coronary artery occlusion [Recovering/Resolving]
  - Blood cholesterol abnormal [Recovering/Resolving]
